FAERS Safety Report 8342695-6 (Version None)
Quarter: 2012Q2

REPORT INFORMATION
  Report Type: 
  Country: None (occurrence: None)
  Receive Date: 20120502
  Receipt Date: 20100524
  Transmission Date: 20120825
  Serious: Yes (Other)
  Sender: FDA-Public Use
  Company Number: 2010AP001073

PATIENT
  Age: 72 Year
  Sex: Female

DRUGS (2)
  1. FUROSEMIDE [Concomitant]
  2. OMEPRAZOLE [Suspect]
     Indication: PEPTIC ULCER

REACTIONS (4)
  - BLOOD PARATHYROID HORMONE INCREASED [None]
  - HYPOCALCAEMIA [None]
  - MALABSORPTION [None]
  - HYPOMAGNESAEMIA [None]
